FAERS Safety Report 24675717 (Version 4)
Quarter: 2025Q1

REPORT INFORMATION
  Report Type: Spontaneous
  Country: JP (occurrence: JP)
  Receive Date: 20241128
  Receipt Date: 20250226
  Transmission Date: 20250409
  Serious: Yes (Hospitalization, Other)
  Sender: BRISTOL-MYERS SQUIBB COMPANY
  Company Number: JP-ONO-2024JP023880

PATIENT
  Age: 7 Decade
  Sex: Male

DRUGS (1)
  1. OPDIVO [Suspect]
     Active Substance: NIVOLUMAB
     Indication: Oesophageal carcinoma
     Route: 041

REACTIONS (6)
  - Myocardial necrosis marker increased [Unknown]
  - Infection [Unknown]
  - Chills [Unknown]
  - Adrenal insufficiency [Unknown]
  - Immune-mediated myocarditis [Unknown]
  - Pyrexia [Unknown]
